FAERS Safety Report 9413741 (Version 1)
Quarter: 2013Q3

REPORT INFORMATION
  Report Type: Report from Study
  Country: TR (occurrence: TR)
  Receive Date: 20130722
  Receipt Date: 20130722
  Transmission Date: 20140515
  Serious: Yes (Death)
  Sender: FDA-Public Use
  Company Number: TR-ASTRAZENECA-2013SE54305

PATIENT
  Sex: 0

DRUGS (2)
  1. PROPOFOL [Suspect]
  2. ATROCORIUM [Suspect]

REACTIONS (3)
  - Completed suicide [Fatal]
  - Overdose [Fatal]
  - Toxicity to various agents [Fatal]
